FAERS Safety Report 23150289 (Version 1)
Quarter: 2023Q4

REPORT INFORMATION
  Report Type: Spontaneous
  Country: CZ (occurrence: CZ)
  Receive Date: 20231106
  Receipt Date: 20231106
  Transmission Date: 20240110
  Serious: Yes (Life-Threatening, Hospitalization, Other)
  Sender: FDA-Public Use
  Company Number: CZ-BRISTOL-MYERS SQUIBB COMPANY-2023-155554

PATIENT
  Age: 82 Year
  Sex: Female

DRUGS (2)
  1. NIVOLUMAB [Suspect]
     Active Substance: NIVOLUMAB
     Indication: Adenocarcinoma
     Dosage: DOSE : UNAV;     FREQ : EVERY 2 WEEKS
     Dates: start: 2021
  2. NIVOLUMAB [Suspect]
     Active Substance: NIVOLUMAB
     Indication: Non-small cell lung cancer

REACTIONS (8)
  - Immune-mediated myocarditis [Recovering/Resolving]
  - Immune-mediated enterocolitis [Recovering/Resolving]
  - Hydrothorax [Unknown]
  - Atelectasis [Unknown]
  - Urinary tract infection [Unknown]
  - Lung carcinoma cell type unspecified recurrent [Unknown]
  - Cardiac failure [Unknown]
  - Swelling [Unknown]

NARRATIVE: CASE EVENT DATE: 20210101
